FAERS Safety Report 19442153 (Version 1)
Quarter: 2021Q2

REPORT INFORMATION
  Report Type: Spontaneous
  Country: US (occurrence: US)
  Receive Date: 20210621
  Receipt Date: 20210621
  Transmission Date: 20210717
  Serious: Yes (Other)
  Sender: FDA-Public Use
  Company Number: US-PROCTER_AND_GAMBLE-GS21056489

PATIENT
  Sex: Female

DRUGS (2)
  1. SECRET DERMA PLUS ANTIPERSPIRANT COOLING [Suspect]
     Active Substance: ALUMINUM ZIRCONIUM OCTACHLOROHYDREX GLY
     Route: 061
  2. OLAYSHWR+BATHLIQBODYWASH [COSMETICS] [Suspect]
     Active Substance: COSMETICS
     Route: 061

REACTIONS (2)
  - Coma [Not Recovered/Not Resolved]
  - Skin disorder [Unknown]
